FAERS Safety Report 4520041-3 (Version None)
Quarter: 2005Q1

REPORT INFORMATION
  Report Type: 
  Country: None (occurrence: None)
  Receive Date: 20041027
  Receipt Date: 20040526
  Transmission Date: 20050727
  Serious: No
  Sender: FDA-Public Use
  Company Number: US078121

PATIENT

DRUGS (4)
  1. SENSIPAR [Suspect]
     Indication: HYPERPARATHYROIDISM SECONDARY
     Dosage: 30 MG, 1 IN 1 DAYS, PO
     Route: 048
     Dates: start: 20040401
  2. PARICALCITOL [Concomitant]
  3. ARANESP [Concomitant]
  4. SEVELAMER HCL [Concomitant]

REACTIONS (4)
  - ABNORMAL BEHAVIOUR [None]
  - AGGRESSION [None]
  - HYPOCALCAEMIA [None]
  - SCREAMING [None]
